FAERS Safety Report 21727624 (Version 2)
Quarter: 2022Q4

REPORT INFORMATION
  Report Type: Spontaneous
  Country: ZA (occurrence: ZA)
  Receive Date: 20221214
  Receipt Date: 20221220
  Transmission Date: 20230113
  Serious: Yes (Death, Life-Threatening, Hospitalization, Other)
  Sender: FDA-Public Use
  Company Number: ZA-009507513-2212ZAF004693

PATIENT
  Sex: Female
  Weight: 53.6 kg

DRUGS (1)
  1. KEYTRUDA [Suspect]
     Active Substance: PEMBROLIZUMAB
     Indication: Renal cancer metastatic
     Dosage: 200 MILLIGRAM, EVERY 3 WEEKS (Q3W)
     Route: 042
     Dates: start: 20220906, end: 20221102

REACTIONS (10)
  - Urinary tract infection [Fatal]
  - Haematuria [Fatal]
  - Malignant neoplasm progression [Unknown]
  - Nausea [Fatal]
  - Vomiting [Fatal]
  - Renal impairment [Unknown]
  - Hyperkalaemia [Unknown]
  - Hydronephrosis [Unknown]
  - Therapy non-responder [Unknown]
  - Product use in unapproved indication [Unknown]

NARRATIVE: CASE EVENT DATE: 20220101
